FAERS Safety Report 9713726 (Version 1)
Quarter: 2013Q4

REPORT INFORMATION
  Report Type: Spontaneous
  Country: NL (occurrence: NL)
  Receive Date: 20131126
  Receipt Date: 20131126
  Transmission Date: 20140711
  Serious: Yes (Death, Other)
  Sender: FDA-Public Use
  Company Number: NL-BRISTOL-MYERS SQUIBB COMPANY-19812825

PATIENT
  Sex: 0

DRUGS (1)
  1. YERVOY [Suspect]

REACTIONS (3)
  - Death [Fatal]
  - Neuropathy peripheral [Unknown]
  - Malignant neoplasm progression [Unknown]
